FAERS Safety Report 9400368 (Version 1)
Quarter: 2013Q3

REPORT INFORMATION
  Report Type: Spontaneous
  Country: US (occurrence: None)
  Receive Date: 20130712
  Receipt Date: 20130712
  Transmission Date: 20140515
  Serious: Yes (Other)
  Sender: FDA-Public Use
  Company Number: None

PATIENT
  Sex: Female

DRUGS (21)
  1. NEUPRO [Suspect]
     Indication: PARKINSON^S DISEASE
     Route: 061
     Dates: start: 2010, end: 2011
  2. FOSAMAX [Concomitant]
  3. PREMARIN [Concomitant]
  4. CHLORTNALIDONE [Concomitant]
  5. DITROPAN [Concomitant]
  6. SEROQUEL [Concomitant]
  7. ESTRO GEL [Concomitant]
  8. PROBIOTIC [Concomitant]
  9. NEXIUM [Concomitant]
  10. MAGNESIUM [Concomitant]
  11. FISH O8IL [Concomitant]
  12. BUPROPION [Concomitant]
  13. VITAMIN D 3 [Concomitant]
  14. LINZESS [Concomitant]
  15. AMITIZA [Concomitant]
  16. LISINOPRIL [Concomitant]
  17. LIPITOR [Concomitant]
  18. VALTREX [Concomitant]
  19. NEUPRO [Concomitant]
  20. PLAVIX [Concomitant]
  21. VITAMIN C [Concomitant]

REACTIONS (2)
  - Application site rash [None]
  - Rash erythematous [None]
